FAERS Safety Report 9177408 (Version 2)
Quarter: 2013Q2

REPORT INFORMATION
  Report Type: Spontaneous
  Country: SE (occurrence: SE)
  Receive Date: 20130321
  Receipt Date: 20130401
  Transmission Date: 20140414
  Serious: Yes (Other)
  Sender: FDA-Public Use
  Company Number: SE-AMGEN-SWESP2011067048

PATIENT
  Age: 78 Year
  Sex: Female
  Weight: 51.7 kg

DRUGS (5)
  1. PROLIA [Suspect]
     Indication: OSTEOPOROSIS
     Dosage: 60 MG, Q6MO
     Route: 058
     Dates: start: 20111019
  2. PROLIA [Suspect]
  3. CALCICHEW [Concomitant]
     Indication: OSTEOPOROSIS
     Dosage: UNK
     Route: 048
  4. ACLASTA [Concomitant]
     Indication: OSTEOPOROSIS
     Dosage: UNK
     Route: 042
  5. PANODIL [Concomitant]
     Indication: PAIN

REACTIONS (8)
  - Activities of daily living impaired [Unknown]
  - Gait disturbance [Unknown]
  - Back pain [Not Recovered/Not Resolved]
  - Muscular weakness [Not Recovered/Not Resolved]
  - Dry skin [Not Recovered/Not Resolved]
  - Arthralgia [Not Recovered/Not Resolved]
  - Groin pain [Not Recovered/Not Resolved]
  - Walking aid user [Unknown]
